FAERS Safety Report 9224606 (Version 1)
Quarter: 2013Q1

REPORT INFORMATION
  Report Type: Spontaneous
  Country: US (occurrence: US)
  Receive Date: 20120917
  Receipt Date: 20120917
  Transmission Date: 20140127
  Serious: Yes (Hospitalization)
  Sender: FDA-Public Use
  Company Number: 1000028064

PATIENT
  Age: 17 Year
  Sex: Female
  Weight: 85 kg

DRUGS (4)
  1. CELEXA (CITALOPRAM HYDROBROMIDE) (TABLETS) [Suspect]
     Route: 048
  2. CONCERTA [Suspect]
     Dosage: TOOK 3 EXTENDED RELEASE TABLETS DURING A SUICIDE ATTEMPT.
     Route: 048
  3. EXCEDRIN (ACETAMINOPHEN (+) ASPIRIN (+) CAFFEINE) [Suspect]
     Route: 048
     Dates: start: 20111210, end: 20111210
  4. MEDROXYPROGESTERONE (MEDROXYPROGESTERONE) (MEDROXYPROGESTERONE) [Concomitant]

REACTIONS (6)
  - Suicide attempt [None]
  - Overdose [None]
  - Suicidal ideation [None]
  - Dizziness [None]
  - Palpitations [None]
  - Anxiety [None]
